FAERS Safety Report 10793946 (Version 1)
Quarter: 2015Q1

REPORT INFORMATION
  Report Type: Spontaneous
  Country: BE (occurrence: BE)
  Receive Date: 20150213
  Receipt Date: 20150213
  Transmission Date: 20150721
  Serious: Yes (Hospitalization)
  Sender: FDA-Public Use
  Company Number: BE-ABBVIE-14P-013-1321911-00

PATIENT
  Sex: Female

DRUGS (5)
  1. DUODOPA [Suspect]
     Active Substance: CARBIDOPA\LEVODOPA
     Indication: PARKINSON^S DISEASE
     Route: 050
     Dates: start: 20101115, end: 20101119
  2. DUODOPA [Suspect]
     Active Substance: CARBIDOPA\LEVODOPA
     Dosage: AM = 3 ML, CD = 2.1 ML/H DURING 16H, ED = 1 ML
     Route: 050
     Dates: start: 20101119, end: 20101216
  3. DUODOPA [Suspect]
     Active Substance: CARBIDOPA\LEVODOPA
     Dosage: DOSE CONTINUOUSLY MONITORED AND ADAPTED
     Route: 050
     Dates: start: 20101216, end: 20141203
  4. DUODOPA [Suspect]
     Active Substance: CARBIDOPA\LEVODOPA
     Dosage: AM = 1.5 ML, CD = 3 ML/H DURING 16H, ED = 1.5 ML, ND = 2.3 ML/H DURING 16H
     Route: 050
     Dates: start: 20141203, end: 20141216
  5. DUODOPA [Suspect]
     Active Substance: CARBIDOPA\LEVODOPA
     Dosage: AM = 1.5 ML, CD = 2.8 ML/H DURING 16H, ED = 1.5 ML
     Route: 050
     Dates: start: 20141216

REACTIONS (3)
  - Fall [Unknown]
  - Hip fracture [Unknown]
  - Gait disturbance [Not Recovered/Not Resolved]
